FAERS Safety Report 23318540 (Version 1)
Quarter: 2023Q4

REPORT INFORMATION
  Report Type: Spontaneous
  Country: US (occurrence: US)
  Receive Date: 20231220
  Receipt Date: 20231220
  Transmission Date: 20240110
  Serious: No
  Sender: FDA-Public Use
  Company Number: US-002147023-NVSC2023US265424

PATIENT

DRUGS (1)
  1. ILARIS [Suspect]
     Active Substance: CANAKINUMAB
     Indication: Familial cold autoinflammatory syndrome
     Dosage: 150 MILLIGRAM PER MILLILITRE, Q4W
     Route: 065
     Dates: start: 202101

REACTIONS (1)
  - Product storage error [Unknown]
